APPROVED DRUG PRODUCT: ALYACEN 1/35
Active Ingredient: ETHINYL ESTRADIOL; NORETHINDRONE
Strength: 0.035MG;1MG
Dosage Form/Route: TABLET;ORAL-28
Application: A091634 | Product #001 | TE Code: AB
Applicant: GLENMARK PHARMACEUTICALS LTD
Approved: Jan 19, 2012 | RLD: No | RS: No | Type: RX